FAERS Safety Report 7535338-2 (Version None)
Quarter: 2011Q2

REPORT INFORMATION
  Report Type: 
  Country: None (occurrence: None)
  Receive Date: 20110609
  Receipt Date: 20080409
  Transmission Date: 20111010
  Serious: Yes (Other)
  Sender: FDA-Public Use
  Company Number: PHNR2008AU00517

PATIENT
  Sex: Female

DRUGS (5)
  1. CHAMOMILE [Concomitant]
  2. CLOZAPINE [Suspect]
     Dosage: 600 MG, DAILY
     Route: 048
     Dates: start: 20050818
  3. ST. JOHN'S WORT [Concomitant]
  4. SKULLCAP [Concomitant]
  5. CLOZAPINE [Suspect]
     Dosage: 300 MG, UNK
     Dates: end: 20080101

REACTIONS (3)
  - NIGHT SWEATS [None]
  - NECK MASS [None]
  - HODGKIN'S DISEASE NODULAR SCLEROSIS STAGE UNSPECIFIED [None]
